FAERS Safety Report 5045962-7 (Version None)
Quarter: 2006Q3

REPORT INFORMATION
  Report Type: 
  Country: None (occurrence: None)
  Receive Date: 20060710
  Receipt Date: 20060629
  Transmission Date: 20061208
  Serious: Yes (Hospitalization)
  Sender: FDA-Public Use
  Company Number: FR-AVENTIS-200612359FR

PATIENT
  Age: 77 Year
  Sex: Male

DRUGS (2)
  1. LOVENOX [Suspect]
     Route: 058
     Dates: start: 20060123, end: 20060127
  2. LOVENOX [Suspect]
     Route: 058
     Dates: start: 20060128

REACTIONS (2)
  - CAUDA EQUINA SYNDROME [None]
  - EXTRADURAL HAEMATOMA [None]
